FAERS Safety Report 7075229-7 (Version None)
Quarter: 2010Q4

REPORT INFORMATION
  Report Type: 
  Country: None (occurrence: None)
  Receive Date: 20101030
  Receipt Date: 20100716
  Transmission Date: 20110411
  Serious: No
  Sender: FDA-Public Use
  Company Number: US-WYE-H16436610

PATIENT
  Age: 83 Year
  Sex: Female
  Weight: 81.72 kg

DRUGS (2)
  1. ADVIL PM [Suspect]
     Indication: INSOMNIA
     Dosage: 2 CAPLETS EVERY EVENING AT BEDTIME
     Route: 048
     Dates: start: 20100601, end: 20100714
  2. TOPROL-XL [Concomitant]

REACTIONS (1)
  - RESTLESS LEGS SYNDROME [None]
